FAERS Safety Report 25918083 (Version 1)
Quarter: 2025Q4

REPORT INFORMATION
  Report Type: Report from Study
  Country: BR (occurrence: BR)
  Receive Date: 20251014
  Receipt Date: 20251014
  Transmission Date: 20260118
  Serious: Yes (Other)
  Sender: JOHNSON AND JOHNSON
  Company Number: BR-JNJFOC-20251008988

PATIENT
  Age: 56 Year
  Sex: Female
  Weight: 59 kg

DRUGS (5)
  1. GOLIMUMAB [Suspect]
     Active Substance: GOLIMUMAB
     Indication: Rheumatoid arthritis
     Dosage: LAST ADMINISTRATION WAS ON 01-SEP-2025, AND THE ONE ON 01-OCT-2025
     Route: 058
  2. GOLIMUMAB [Suspect]
     Active Substance: GOLIMUMAB
  3. GOLIMUMAB [Suspect]
     Active Substance: GOLIMUMAB
  4. SIMPONI [Suspect]
     Active Substance: GOLIMUMAB
     Indication: Rheumatoid arthritis
     Dosage: LAST ADMINISTRATION WAS ON 01-SEP-2025, AND THE ONE ON 01-OCT-2025
     Route: 058
  5. SIMPONI [Suspect]
     Active Substance: GOLIMUMAB

REACTIONS (4)
  - Diabetes mellitus [Unknown]
  - Localised infection [Recovering/Resolving]
  - Arthralgia [Unknown]
  - Pain [Unknown]
